FAERS Safety Report 6808153-2 (Version None)
Quarter: 2010Q2

REPORT INFORMATION
  Report Type: 
  Country: None (occurrence: None)
  Receive Date: 20100629
  Receipt Date: 20090314
  Transmission Date: 20101027
  Serious: Yes (Other)
  Sender: FDA-Public Use
  Company Number: US-PFIZER INC-2009175952

PATIENT
  Sex: Female
  Weight: 67 kg

DRUGS (2)
  1. SPIRONOLACTONE [Suspect]
     Indication: HYPERTENSION
     Dosage: 25 MG, 1X/DAY
     Dates: start: 20080101, end: 20090101
  2. ATACAND [Suspect]

REACTIONS (4)
  - BLOOD POTASSIUM INCREASED [None]
  - BONE PAIN [None]
  - LIMB DISCOMFORT [None]
  - MUSCLE SPASMS [None]
